FAERS Safety Report 25929806 (Version 1)
Quarter: 2025Q4

REPORT INFORMATION
  Report Type: Spontaneous
  Country: US (occurrence: US)
  Receive Date: 20251016
  Receipt Date: 20251016
  Transmission Date: 20260117
  Serious: No
  Sender: COSETTE PHARMACEUTICALS INC
  Company Number: US-COSETTE-CP2025US001009

PATIENT
  Sex: Male

DRUGS (1)
  1. DESONIDE [Suspect]
     Active Substance: DESONIDE
     Indication: Product used for unknown indication
     Route: 065

REACTIONS (3)
  - Skin irritation [Recovered/Resolved]
  - Skin burning sensation [Recovered/Resolved]
  - Pain [Recovered/Resolved]
